FAERS Safety Report 19776800 (Version 1)
Quarter: 2021Q3

REPORT INFORMATION
  Report Type: Spontaneous
  Country: US (occurrence: US)
  Receive Date: 20210902
  Receipt Date: 20210902
  Transmission Date: 20211014
  Serious: No
  Sender: FDA-Public Use
  Company Number: US-SA-2021SA287513

PATIENT
  Age: 42 Year
  Sex: Female
  Weight: 75.75 kg

DRUGS (3)
  1. PROTOPIC [Concomitant]
     Active Substance: TACROLIMUS
  2. DUPIXENT [Suspect]
     Active Substance: DUPILUMAB
     Indication: ILLNESS
     Dosage: 300 MG, QOW
     Route: 058
     Dates: start: 202104
  3. MIRENA [Concomitant]
     Active Substance: LEVONORGESTREL
     Dosage: 20 UG, IUD

REACTIONS (2)
  - Product use in unapproved indication [Unknown]
  - Arthralgia [Not Recovered/Not Resolved]

NARRATIVE: CASE EVENT DATE: 202104
